FAERS Safety Report 7980231-4 (Version None)
Quarter: 2011Q4

REPORT INFORMATION
  Report Type: 
  Country: None (occurrence: None)
  Receive Date: 20111214
  Receipt Date: 20111208
  Transmission Date: 20120403
  Serious: Yes (Death, Hospitalization, Other)
  Sender: FDA-Public Use
  Company Number: DE-ELI_LILLY_AND_COMPANY-DE201112001994

PATIENT
  Age: 84 Year
  Sex: Female

DRUGS (6)
  1. ANALGESICS [Concomitant]
  2. CORTISONE ACETATE [Concomitant]
  3. VITAMIN D [Concomitant]
  4. OXYGEN [Concomitant]
  5. FORTEO [Suspect]
     Indication: OSTEOPOROSIS
     Dosage: UNK, QD
     Route: 058
     Dates: start: 20110314
  6. CALCIUM [Concomitant]

REACTIONS (3)
  - COMA [None]
  - LUNG DISORDER [None]
  - HOSPITALISATION [None]
